FAERS Safety Report 5877005-7 (Version None)
Quarter: 2008Q3

REPORT INFORMATION
  Report Type: 
  Country: None (occurrence: None)
  Receive Date: 20080910
  Receipt Date: 20080901
  Transmission Date: 20090109
  Serious: Yes (Death, Other)
  Sender: FDA-Public Use
  Company Number: DE-PFIZER INC-2008074159

PATIENT
  Sex: Male
  Weight: 69 kg

DRUGS (6)
  1. SUTENT [Suspect]
     Indication: METASTATIC RENAL CELL CARCINOMA
     Dosage: DAILY DOSE:50MG
     Route: 048
     Dates: start: 20080410, end: 20080606
  2. RAMIPRIL [Concomitant]
  3. BISOPROLOL FUMARATE [Concomitant]
  4. FUROSEMID [Concomitant]
  5. ACETYLSALICYLIC ACID SRT [Concomitant]
  6. PRAVASTATIN [Concomitant]

REACTIONS (5)
  - CARDIAC FAILURE CONGESTIVE [None]
  - CONDITION AGGRAVATED [None]
  - HEPATIC FAILURE [None]
  - OEDEMA PERIPHERAL [None]
  - RENAL IMPAIRMENT [None]
